FAERS Safety Report 8304121-2 (Version None)
Quarter: 2012Q1

REPORT INFORMATION
  Report Type: 
  Country: None (occurrence: None)
  Receive Date: 20120326
  Receipt Date: 20110502
  Transmission Date: 20120608
  Serious: Yes (Other)
  Sender: FDA-Public Use
  Company Number: PHHY2011US24632

PATIENT
  Age: 77 Year
  Sex: Female
  Weight: 59 kg

DRUGS (5)
  1. OMEPRAZOLE [Concomitant]
  2. TASIGNA [Suspect]
     Indication: CHRONIC MYELOID LEUKAEMIA
     Dosage: 300 MG, BID, ORAL, 200 MG, BID, ORAL
     Route: 048
     Dates: start: 20110204, end: 20110317
  3. TASIGNA [Suspect]
     Indication: CHRONIC MYELOID LEUKAEMIA
     Dosage: 300 MG, BID, ORAL, 200 MG, BID, ORAL
     Route: 048
     Dates: start: 20110322
  4. ALLOPURINOL [Concomitant]
  5. LISINOPRIL [Concomitant]

REACTIONS (4)
  - HEPATIC ENZYME INCREASED [None]
  - SERUM FERRITIN INCREASED [None]
  - PRURITUS [None]
  - HEADACHE [None]
